FAERS Safety Report 14131451 (Version 3)
Quarter: 2018Q1

REPORT INFORMATION
  Report Type: Report from Study
  Country: US (occurrence: US)
  Receive Date: 20171026
  Receipt Date: 20180125
  Transmission Date: 20180508
  Serious: No
  Sender: FDA-Public Use
  Company Number: US-AMGEN-USASL2017114192

PATIENT
  Age: 60 Year
  Sex: Male
  Weight: 103.4 kg

DRUGS (14)
  1. PRAVASTATIN. [Concomitant]
     Active Substance: PRAVASTATIN
     Dosage: 80 MG, QD
     Route: 048
  2. SODIUM CHLORIDE. [Concomitant]
     Active Substance: SODIUM CHLORIDE
     Dosage: 0.9 %, 1000ML
     Route: 042
  3. RANITIDINE. [Concomitant]
     Active Substance: RANITIDINE
     Dosage: 150 NG, BID
     Route: 048
  4. NIACIN. [Concomitant]
     Active Substance: NIACIN
     Dosage: 250 MG, QD
  5. CIALIS [Concomitant]
     Active Substance: TADALAFIL
     Dosage: 10 MG, AS NECESSARY
  6. COQ10 [Concomitant]
     Active Substance: UBIDECARENONE
     Dosage: 100 MG, BID
     Route: 048
  7. LISINOPRIL. [Concomitant]
     Active Substance: LISINOPRIL
     Dosage: 20 MG, QD
     Route: 048
  8. PRAVASTATIN SODIUM. [Concomitant]
     Active Substance: PRAVASTATIN SODIUM
     Dosage: 80 MG, QD
  9. OMEGA 3 [Concomitant]
     Active Substance: OMEGA-3 FATTY ACIDS
     Dosage: 1280 MG, QD
     Route: 048
  10. REPATHA [Suspect]
     Active Substance: EVOLOCUMAB
     Indication: TYPE IIA HYPERLIPIDAEMIA
     Dosage: 140 MG, Q2WK
     Route: 058
  11. ALLOPURINOL. [Concomitant]
     Active Substance: ALLOPURINOL
     Dosage: 100 MG, QD
     Route: 048
  12. ASPIRIN EC [Concomitant]
     Active Substance: ASPIRIN
     Dosage: 81 MG, QD
     Route: 048
  13. METFORMIN [Concomitant]
     Active Substance: METFORMIN HYDROCHLORIDE
  14. COLCRYS [Concomitant]
     Active Substance: COLCHICINE
     Dosage: 0.6 MG, Q4H AS NEEDED

REACTIONS (6)
  - Rash pruritic [Recovered/Resolved]
  - Chest pain [Unknown]
  - Ventricular extrasystoles [Unknown]
  - Varicose vein [Unknown]
  - Rash papular [Unknown]
  - Muscle spasms [Unknown]

NARRATIVE: CASE EVENT DATE: 20170502
